FAERS Safety Report 4805700-7 (Version None)
Quarter: 2005Q4

REPORT INFORMATION
  Report Type: 
  Country: None (occurrence: None)
  Receive Date: 20051018
  Receipt Date: 20050928
  Transmission Date: 20060501
  Serious: Yes (Hospitalization)
  Sender: FDA-Public Use
  Company Number: TRP_0496_2005

PATIENT
  Age: 40 Year
  Sex: Male

DRUGS (7)
  1. RIBASPHERE [Suspect]
     Indication: HEPATITIS C
     Dosage: 1000 MG QDAY PO
     Route: 048
     Dates: start: 20050505
  2. INFERGEN [Suspect]
     Indication: HEPATITIS C
     Dosage: 15 MCG QDAY SC
     Route: 058
     Dates: start: 20050505
  3. KLONOPIN [Concomitant]
  4. FLEXERIL [Concomitant]
  5. REMERON [Concomitant]
  6. TRILEPTAL [Concomitant]
  7. TEMAZEPAM [Concomitant]

REACTIONS (5)
  - ABDOMINAL PAIN [None]
  - DIARRHOEA [None]
  - FLANK PAIN [None]
  - NAUSEA [None]
  - VOMITING [None]
